FAERS Safety Report 14818861 (Version 1)
Quarter: 2018Q2

REPORT INFORMATION
  Report Type: Spontaneous
  Country: US (occurrence: US)
  Receive Date: 20180427
  Receipt Date: 20180427
  Transmission Date: 20180711
  Serious: No
  Sender: FDA-Public Use
  Company Number: US-AMGEN-USASP2018054915

PATIENT
  Age: 39 Year
  Sex: Female

DRUGS (2)
  1. ENBREL [Suspect]
     Active Substance: ETANERCEPT
     Indication: RHEUMATOID ARTHRITIS
     Dosage: 50 MG, 2 TIMES/WK
     Route: 065
     Dates: start: 201804
  2. ENBREL [Suspect]
     Active Substance: ETANERCEPT
     Indication: PSORIATIC ARTHROPATHY

REACTIONS (10)
  - Bone pain [Unknown]
  - Off label use [Unknown]
  - Injection site swelling [Unknown]
  - Hypersensitivity [Unknown]
  - Fear of injection [Unknown]
  - Pain [Unknown]
  - Injection site pain [Unknown]
  - Injection site erythema [Unknown]
  - Injection site rash [Unknown]
  - Injection site macule [Unknown]

NARRATIVE: CASE EVENT DATE: 201804
